FAERS Safety Report 5032575-6 (Version None)
Quarter: 2006Q2

REPORT INFORMATION
  Report Type: 
  Country: None (occurrence: None)
  Receive Date: 20060621
  Receipt Date: 20060621
  Transmission Date: 20061013
  Serious: Yes (Other)
  Sender: FDA-Public Use
  Company Number: None

PATIENT
  Age: 73 Year
  Sex: Male
  Weight: 117 kg

DRUGS (1)
  1. BACTRIM [Suspect]

REACTIONS (3)
  - DYSPNOEA [None]
  - SWELLING [None]
  - THROAT TIGHTNESS [None]
